FAERS Safety Report 11793083 (Version 1)
Quarter: 2015Q4

REPORT INFORMATION
  Report Type: Spontaneous
  Country: NL (occurrence: NL)
  Receive Date: 20151202
  Receipt Date: 20151202
  Transmission Date: 20160305
  Serious: Yes (Other)
  Sender: FDA-Public Use
  Company Number: NL-WATSON-2015-26433

PATIENT
  Age: 30 Year
  Sex: Male

DRUGS (4)
  1. GABAPENTIN. [Concomitant]
     Active Substance: GABAPENTIN
     Indication: EPILEPSY
     Dosage: GABAPENTIN 400 MG TID (TOTAL DAILY DOSE 3600 MG)
     Route: 065
  2. LAMOTRIGINE (UNKNOWN) [Suspect]
     Active Substance: LAMOTRIGINE
     Indication: EPILEPSY
     Dosage: LAMOTRIGINE 150 MG BID (TOTAL DAILY DOSE 300 MG)
     Route: 065
  3. VALPROIC ACID. [Suspect]
     Active Substance: VALPROIC ACID
     Indication: EPILEPSY
     Dosage: VALPROIC ACID 600 MG BID (TOTAL DAILY DOSE 1200 MG)
     Route: 065
  4. CARBAMAZEPINE. [Suspect]
     Active Substance: CARBAMAZEPINE
     Indication: EPILEPSY
     Dosage: CARBAMAZEPINE 400 MG BID (TOTAL DAILY DOSE 1200 MG)
     Route: 065

REACTIONS (1)
  - Nystagmus [Recovered/Resolved]
